FAERS Safety Report 23035364 (Version 2)
Quarter: 2023Q4

REPORT INFORMATION
  Report Type: Spontaneous
  Country: TW (occurrence: TW)
  Receive Date: 20231005
  Receipt Date: 20231013
  Transmission Date: 20240109
  Serious: Yes (Death, Other)
  Sender: FDA-Public Use
  Company Number: TW-009507513-2310TWN000091

PATIENT
  Age: 66 Year
  Sex: Male

DRUGS (1)
  1. POSACONAZOLE [Suspect]
     Active Substance: POSACONAZOLE
     Indication: Scedosporium infection
     Dosage: UNK
     Route: 048

REACTIONS (2)
  - Septic shock [Fatal]
  - Product use in unapproved indication [Unknown]
